FAERS Safety Report 19879064 (Version 1)
Quarter: 2021Q3

REPORT INFORMATION
  Report Type: Spontaneous
  Country: RU (occurrence: RU)
  Receive Date: 20210924
  Receipt Date: 20210924
  Transmission Date: 20211014
  Serious: Yes (Other)
  Sender: FDA-Public Use
  Company Number: RU-ABBVIE-21K-251-4089235-00

PATIENT
  Age: 39 Year
  Sex: Male

DRUGS (3)
  1. CARBON [Suspect]
     Active Substance: ACTIVATED CHARCOAL
     Indication: COMPLETED SUICIDE
     Dosage: 1 DOSE / 1 DOSE / 1 DOSE
     Route: 048
     Dates: start: 20180309, end: 20180309
  2. DEPAKINE [Suspect]
     Active Substance: VALPROATE SODIUM
     Indication: COMPLETED SUICIDE
     Dosage: 1 DOSE / 1 DOSE / 1 DOSE
     Route: 048
     Dates: start: 20180309, end: 20180309
  3. ACETYLSALICYLIC ACID [Suspect]
     Active Substance: ASPIRIN
     Indication: COMPLETED SUICIDE
     Dosage: 1 DOSE / 1 DOSE / 1 DOSE
     Route: 048
     Dates: start: 20180309, end: 20180309

REACTIONS (1)
  - Drug abuse [Unknown]

NARRATIVE: CASE EVENT DATE: 20180309
